FAERS Safety Report 10553681 (Version 1)
Quarter: 2014Q4

REPORT INFORMATION
  Report Type: Spontaneous
  Country: JP (occurrence: None)
  Receive Date: 20141028
  Receipt Date: 20141028
  Transmission Date: 20150529
  Serious: Yes (Hospitalization)
  Sender: FDA-Public Use
  Company Number: 2014SA140129

PATIENT
  Sex: Female

DRUGS (2)
  1. IMMUNOBLADDER [Suspect]
     Active Substance: BCG VACCINE
     Indication: IMMUNISATION
     Dosage: IN SERIES
  2. IMMUCYST [Suspect]
     Active Substance: BACILLUS CALMETTE-GUERIN SUBSTRAIN CONNAUGHT LIVE ANTIGEN
     Indication: BLADDER CANCER
     Dosage: INTRAVESICAL

REACTIONS (1)
  - Reiter^s syndrome [None]
